FAERS Safety Report 14289760 (Version 1)
Quarter: 2017Q4

REPORT INFORMATION
  Report Type: Spontaneous
  Country: JP (occurrence: JP)
  Receive Date: 20171215
  Receipt Date: 20171215
  Transmission Date: 20180321
  Serious: Yes (Other)
  Sender: FDA-Public Use
  Company Number: JP-ASTELLAS-2017JP024156AA

PATIENT
  Sex: Female

DRUGS (5)
  1. MAGMITT [Concomitant]
     Active Substance: MAGNESIUM OXIDE
     Indication: CONSTIPATION
     Dosage: UNK UNK, UNKNOWN FREQ.
     Route: 048
  2. BETANIS [Suspect]
     Active Substance: MIRABEGRON
     Route: 048
     Dates: start: 2017, end: 2017
  3. BETANIS [Suspect]
     Active Substance: MIRABEGRON
     Indication: NOCTURIA
     Route: 048
     Dates: end: 2017
  4. BETANIS [Suspect]
     Active Substance: MIRABEGRON
     Route: 048
     Dates: start: 2017, end: 2017
  5. BETANIS [Suspect]
     Active Substance: MIRABEGRON
     Route: 048
     Dates: start: 2017

REACTIONS (5)
  - Varicose vein [Recovered/Resolved]
  - Intentional product misuse [Unknown]
  - Urine odour abnormal [Not Recovered/Not Resolved]
  - Constipation [Not Recovered/Not Resolved]
  - Intentional underdose [Unknown]

NARRATIVE: CASE EVENT DATE: 2017
